FAERS Safety Report 8191249-3 (Version None)
Quarter: 2012Q1

REPORT INFORMATION
  Report Type: 
  Country: None (occurrence: None)
  Receive Date: 20120221
  Receipt Date: 20111212
  Transmission Date: 20120608
  Serious: No
  Sender: FDA-Public Use
  Company Number: 047496

PATIENT
  Age: 33 Year
  Sex: Female

DRUGS (3)
  1. LACOSAMIDE [Suspect]
     Dosage: (150 MG BID ORAL)
     Route: 048
  2. LEVETIRACETAM [Suspect]
     Dosage: (750 MG 2 QAM AND 3 Q HS)
  3. KLONOPIN [Concomitant]

REACTIONS (1)
  - CONVULSION [None]
